FAERS Safety Report 6732291-6 (Version None)
Quarter: 2010Q2

REPORT INFORMATION
  Report Type: 
  Country: None (occurrence: None)
  Receive Date: 20100519
  Receipt Date: 20100514
  Transmission Date: 20101027
  Serious: Yes (Hospitalization)
  Sender: FDA-Public Use
  Company Number: B0653539A

PATIENT
  Age: 50 Year
  Sex: Male

DRUGS (4)
  1. ARTIST [Suspect]
     Indication: HYPERTENSION
     Dosage: 20MG PER DAY
     Route: 048
     Dates: start: 20100405, end: 20100419
  2. CANDESARTAN CILEXETIL [Concomitant]
  3. ADALAT [Concomitant]
  4. SELARA [Concomitant]

REACTIONS (1)
  - HEPATIC FUNCTION ABNORMAL [None]
